FAERS Safety Report 5343504-X (Version None)
Quarter: 2007Q2

REPORT INFORMATION
  Report Type: 
  Country: None (occurrence: None)
  Receive Date: 20070604
  Receipt Date: 20070524
  Transmission Date: 20071010
  Serious: Yes (Hospitalization)
  Sender: FDA-Public Use
  Company Number: PHHO2007AR09014

PATIENT
  Age: 69 Year
  Sex: Male

DRUGS (1)
  1. AMLODIPINE BESILATE, HYDROCHLOROTHIAZIDE, VALSARTAN [Suspect]
     Dosage: SINGLE DOSE

REACTIONS (1)
  - PROSTATIC OPERATION [None]
